FAERS Safety Report 7898171-8 (Version None)
Quarter: 2011Q4

REPORT INFORMATION
  Report Type: 
  Country: None (occurrence: None)
  Receive Date: 20111103
  Receipt Date: 20111019
  Transmission Date: 20120403
  Serious: Yes (Life-Threatening, Hospitalization, Disabling)
  Sender: FDA-Public Use
  Company Number: 2011MA015449

PATIENT
  Age: 68 Year
  Sex: Male

DRUGS (5)
  1. FINASTERIDE [Suspect]
     Indication: BENIGN PROSTATIC HYPERPLASIA
     Dosage: 5 MG;QD;PO
     Route: 048
     Dates: start: 20100225, end: 20111004
  2. ACETAMINOPHEN AND CODEINE PHOSPHATE [Concomitant]
  3. WARFARIN SODIUM [Concomitant]
  4. BISOPROLOL [Concomitant]
  5. TAMSULOSIN HCL [Concomitant]

REACTIONS (1)
  - BREAST CANCER MALE [None]
